FAERS Safety Report 15146717 (Version 1)
Quarter: 2018Q3

REPORT INFORMATION
  Report Type: Spontaneous
  Country: US (occurrence: US)
  Receive Date: 20180716
  Receipt Date: 20180716
  Transmission Date: 20181010
  Serious: Yes (Other)
  Sender: FDA-Public Use
  Company Number: US-CIPLA LTD.-2018US17787

PATIENT

DRUGS (1)
  1. CELECOXIB. [Suspect]
     Active Substance: CELECOXIB
     Indication: PRODUCT USED FOR UNKNOWN INDICATION
     Dosage: 200 MG, 2 PILLS A DAY
     Route: 048
     Dates: start: 20180310, end: 20180311

REACTIONS (10)
  - Pyrexia [Recovering/Resolving]
  - Product substitution issue [Unknown]
  - Influenza like illness [Unknown]
  - Chromaturia [Recovering/Resolving]
  - Asthenia [Unknown]
  - Headache [Recovering/Resolving]
  - Blood pressure increased [Recovering/Resolving]
  - Palpitations [Recovering/Resolving]
  - Blood urine [Recovering/Resolving]
  - Malaise [Unknown]

NARRATIVE: CASE EVENT DATE: 201803
